FAERS Safety Report 6262134-9 (Version None)
Quarter: 2009Q3

REPORT INFORMATION
  Report Type: 
  Country: None (occurrence: None)
  Receive Date: 20090707
  Receipt Date: 20090707
  Transmission Date: 20100115
  Serious: Yes (Disabling)
  Sender: FDA-Public Use
  Company Number: None

PATIENT
  Age: 58 Year
  Sex: Female
  Weight: 72.5755 kg

DRUGS (3)
  1. ALCON OPTI-FREE REPLENISH ALCON LABORATORIES INC, FORT WORTH [Suspect]
     Indication: CONTACT LENS THERAPY
     Dosage: AS NEEDED BID AND PRN OPTHALMIC
     Route: 047
     Dates: start: 20090510, end: 20090521
  2. ALCON OPTI-FREE REPLENISH ALCON LABORATORIES INC, FORT WORTH [Suspect]
     Indication: CONTACT LENS THERAPY
     Dosage: AS NEEDED BID AND PRN OPTHALMIC
     Route: 047
     Dates: start: 20090622, end: 20090702
  3. ALCON OPTI-FREE REPLENISH ALCON LABORATORIES INC, FORT WORTH [Suspect]

REACTIONS (2)
  - EYE INFLAMMATION [None]
  - KERATITIS [None]
